FAERS Safety Report 5943577-7 (Version None)
Quarter: 2008Q4

REPORT INFORMATION
  Report Type: 
  Country: None (occurrence: None)
  Receive Date: 20081106
  Receipt Date: 20080422
  Transmission Date: 20090506
  Serious: No
  Sender: FDA-Public Use
  Company Number: A0708192A

PATIENT
  Age: 15 Month
  Sex: Male
  Weight: 10.5 kg

DRUGS (4)
  1. HAVRIX 720 [Suspect]
     Indication: PROPHYLAXIS
     Route: 030
     Dates: start: 20080124, end: 20080124
  2. DIPHTHERIA TETANUS POLIO VACCINE [Suspect]
     Dates: start: 20080124, end: 20080124
  3. AMOXICILLIN [Suspect]
     Indication: OTITIS MEDIA
     Dates: start: 20080115
  4. TRIPEDIA [Concomitant]
     Indication: PROPHYLAXIS
     Route: 065
     Dates: start: 20080124, end: 20080124

REACTIONS (3)
  - RASH [None]
  - URTICARIA [None]
  - VIRAL INFECTION [None]
